FAERS Safety Report 15326784 (Version 2)
Quarter: 2018Q3

REPORT INFORMATION
  Report Type: Spontaneous
  Country: IN (occurrence: IN)
  Receive Date: 20180828
  Receipt Date: 20180830
  Transmission Date: 20181010
  Serious: Yes (Life-Threatening, Other)
  Sender: FDA-Public Use
  Company Number: IN-MYLANLABS-2018M1063856

PATIENT
  Age: 14 Year
  Sex: Male
  Weight: 56 kg

DRUGS (12)
  1. ATRACURIUM BESILATE [Concomitant]
     Active Substance: ATRACURIUM BESYLATE
     Indication: INDUCTION OF ANAESTHESIA
     Route: 042
  2. OXYGEN. [Concomitant]
     Active Substance: OXYGEN
     Indication: MAINTENANCE OF ANAESTHESIA
     Route: 065
  3. FENTANYL. [Suspect]
     Active Substance: FENTANYL
     Indication: GENERAL ANAESTHESIA
     Dosage: 100 ?G
     Route: 042
  4. KETAMINE [Suspect]
     Active Substance: KETAMINE
     Indication: GENERAL ANAESTHESIA
     Dosage: 100 MG
     Route: 042
  5. ATROPINE. [Suspect]
     Active Substance: ATROPINE
     Indication: VENTRICULAR EXTRASYSTOLES
     Dosage: 0.6 MG
     Route: 042
  6. GLYCOPYRROLATE                     /00196201/ [Concomitant]
     Active Substance: GLYCOPYRRONIUM
     Indication: VENTRICULAR EXTRASYSTOLES
     Dosage: 0.2 ?G
     Route: 042
  7. MIDAZOLAM [Concomitant]
     Active Substance: MIDAZOLAM HYDROCHLORIDE
     Indication: PREMEDICATION
     Dosage: 1 MG
     Route: 042
  8. THIOPENTONE SODIUM [Suspect]
     Active Substance: THIOPENTAL SODIUM
     Indication: GENERAL ANAESTHESIA
     Dosage: 250 MG
     Route: 042
  9. METOPROLOL. [Concomitant]
     Active Substance: METOPROLOL
     Indication: PRODUCT USED FOR UNKNOWN INDICATION
     Dosage: 25 MG, BID
     Route: 048
  10. ISOFLURANE. [Suspect]
     Active Substance: ISOFLURANE
     Indication: MAINTENANCE OF ANAESTHESIA
     Route: 065
  11. XYLOCARD [Suspect]
     Active Substance: LIDOCAINE HYDROCHLORIDE
     Indication: VENTRICULAR EXTRASYSTOLES
     Dosage: 50 MG
     Route: 042
  12. XYLOCARD [Suspect]
     Active Substance: LIDOCAINE HYDROCHLORIDE
     Indication: VENTRICULAR EXTRASYSTOLES
     Dosage: 60 MG
     Route: 042

REACTIONS (3)
  - Blood pressure decreased [Recovering/Resolving]
  - Electrocardiogram QT prolonged [Recovering/Resolving]
  - Ventricular extrasystoles [Recovering/Resolving]
